FAERS Safety Report 8151467-7 (Version None)
Quarter: 2012Q1

REPORT INFORMATION
  Report Type: 
  Country: None (occurrence: None)
  Receive Date: 20120220
  Receipt Date: 20120213
  Transmission Date: 20120608
  Serious: Yes (Hospitalization)
  Sender: FDA-Public Use
  Company Number: US-ASTRAZENECA-2012SE09952

PATIENT
  Age: 47 Year
  Sex: Male
  Weight: 78.9 kg

DRUGS (4)
  1. SEROQUEL [Suspect]
     Indication: MAJOR DEPRESSION
     Route: 048
  2. LEXAPRO [Concomitant]
     Indication: MAJOR DEPRESSION
  3. XANAX [Concomitant]
     Indication: ANXIETY
  4. SEROQUEL [Suspect]
     Dosage: DAILY
     Route: 048

REACTIONS (1)
  - MAJOR DEPRESSION [None]
